FAERS Safety Report 6985993-0 (Version None)
Quarter: 2010Q3

REPORT INFORMATION
  Report Type: 
  Country: None (occurrence: None)
  Receive Date: 20100915
  Receipt Date: 20100902
  Transmission Date: 20110219
  Serious: Yes (Other)
  Sender: FDA-Public Use
  Company Number: JP-AMGEN-QUU437899

PATIENT
  Sex: Female
  Weight: 43 kg

DRUGS (6)
  1. ENBREL [Suspect]
     Indication: RHEUMATOID ARTHRITIS
     Route: 058
     Dates: start: 20090220, end: 20100806
  2. ENBREL [Suspect]
     Route: 058
     Dates: start: 20051014
  3. PREDNISOLONE [Suspect]
     Indication: RHEUMATOID ARTHRITIS
     Route: 048
  4. BENET [Concomitant]
     Indication: OSTEOPOROSIS
     Route: 048
  5. MUCOSTA [Concomitant]
     Route: 048
  6. CELECOXIB [Concomitant]
     Indication: RHEUMATOID ARTHRITIS
     Route: 048

REACTIONS (2)
  - ORGANISING PNEUMONIA [None]
  - PNEUMONIA STAPHYLOCOCCAL [None]
